FAERS Safety Report 19899495 (Version 2)
Quarter: 2021Q4

REPORT INFORMATION
  Report Type: Spontaneous
  Country: DE (occurrence: DE)
  Receive Date: 20210929
  Receipt Date: 20211005
  Transmission Date: 20220303
  Serious: Yes (Other)
  Sender: FDA-Public Use
  Company Number: 2021A746644

PATIENT
  Age: 86 Year
  Sex: Male

DRUGS (10)
  1. TICAGRELOR [Suspect]
     Active Substance: TICAGRELOR
     Route: 048
  2. ASPIRIN [Concomitant]
     Active Substance: ASPIRIN
  3. SACUBITRIL\VALSARTAN [Concomitant]
     Active Substance: SACUBITRIL\VALSARTAN
  4. ALDACTONE [Concomitant]
     Active Substance: SPIRONOLACTONE
  5. METOPROLOL [Concomitant]
     Active Substance: METOPROLOL
  6. TORSEMIDE [Concomitant]
     Active Substance: TORSEMIDE
  7. ATORVASTATIN [Concomitant]
     Active Substance: ATORVASTATIN
  8. METFORMIN [Concomitant]
     Active Substance: METFORMIN HYDROCHLORIDE
  9. TOUJEO [Concomitant]
     Active Substance: INSULIN GLARGINE
  10. DAPAGLIFLOZON [Concomitant]

REACTIONS (2)
  - Mitral valve incompetence [Unknown]
  - Tricuspid valve incompetence [Unknown]
